FAERS Safety Report 23344410 (Version 1)
Quarter: 2023Q4

REPORT INFORMATION
  Report Type: Spontaneous
  Country: US (occurrence: US)
  Receive Date: 20231228
  Receipt Date: 20231228
  Transmission Date: 20240109
  Serious: Yes (Hospitalization)
  Sender: FDA-Public Use
  Company Number: US-BRISTOL-MYERS SQUIBB COMPANY-2023-186950

PATIENT
  Age: 88 Year
  Sex: Female
  Weight: 55.34 kg

DRUGS (1)
  1. REVLIMID [Suspect]
     Active Substance: LENALIDOMIDE
     Indication: Plasma cell myeloma
     Dosage: DAILY
     Route: 048

REACTIONS (4)
  - Urinary tract infection [Recovering/Resolving]
  - Dehydration [Recovering/Resolving]
  - Heart rate decreased [Recovering/Resolving]
  - Decreased appetite [Recovering/Resolving]
